FAERS Safety Report 4627457-5 (Version None)
Quarter: 2005Q2

REPORT INFORMATION
  Report Type: 
  Country: None (occurrence: None)
  Receive Date: 20050405
  Receipt Date: 20041123
  Transmission Date: 20051028
  Serious: Yes (Life-Threatening, Hospitalization, Disabling)
  Sender: FDA-Public Use
  Company Number: DE-MERCK-0411DEU00456

PATIENT
  Age: 58 Year
  Sex: Female

DRUGS (12)
  1. VIOXX [Suspect]
     Indication: PAIN
     Route: 048
     Dates: start: 20001030, end: 20040901
  2. VIOXX [Suspect]
     Indication: ARTHRITIS
     Route: 048
     Dates: start: 20001030, end: 20040901
  3. [THERAPY UNSPECIFIED] [Concomitant]
     Route: 065
  4. METOPROLOL SUCCINATE [Concomitant]
     Route: 065
  5. SIMETHICONE [Concomitant]
     Route: 065
  6. METOCLOPRAMIDE [Concomitant]
     Route: 065
  7. ZOCOR [Concomitant]
     Route: 065
  8. ZOPICLONE [Concomitant]
     Route: 065
  9. CITALOPRAM HYDROBROMIDE [Concomitant]
     Route: 065
  10. PIRETANIDE [Concomitant]
     Route: 065
  11. LERCANIDIPINE [Concomitant]
     Route: 065
  12. FOSINOPRIL SODIUM [Concomitant]
     Route: 065

REACTIONS (4)
  - GASTRIC DISORDER [None]
  - GASTRIC NEOPLASM [None]
  - GASTRITIS EROSIVE [None]
  - MYOCARDIAL INFARCTION [None]
